FAERS Safety Report 25579654 (Version 2)
Quarter: 2025Q3

REPORT INFORMATION
  Report Type: Spontaneous
  Country: US (occurrence: US)
  Receive Date: 20250718
  Receipt Date: 20250718
  Transmission Date: 20251021
  Serious: No
  Sender: NOVO NORDISK
  Company Number: US-NOVOPROD-1282025

PATIENT
  Sex: Male

DRUGS (2)
  1. WEGOVY [Suspect]
     Active Substance: SEMAGLUTIDE
     Indication: Product used for unknown indication
     Route: 058
     Dates: start: 2024
  2. WEGOVY [Suspect]
     Active Substance: SEMAGLUTIDE
     Indication: Product used for unknown indication
     Route: 058

REACTIONS (8)
  - Decreased appetite [Unknown]
  - Feeling abnormal [Unknown]
  - Pruritus [Unknown]
  - Injection site swelling [Unknown]
  - Injection site pain [Unknown]
  - Injection site indentation [Recovered/Resolved]
  - Therapeutic product effect decreased [Unknown]
  - Off label use [Unknown]
